FAERS Safety Report 7425172-6 (Version None)
Quarter: 2011Q2

REPORT INFORMATION
  Report Type: 
  Country: None (occurrence: None)
  Receive Date: 20110413
  Receipt Date: 20110330
  Transmission Date: 20111010
  Serious: Yes (Other)
  Sender: FDA-Public Use
  Company Number: 2011SP014569

PATIENT
  Sex: Female

DRUGS (1)
  1. DULERA TABLET [Suspect]
     Indication: ASTHMA

REACTIONS (3)
  - UNEVALUABLE EVENT [None]
  - DYSPHONIA [None]
  - THROAT TIGHTNESS [None]
